FAERS Safety Report 24708569 (Version 1)
Quarter: 2024Q4

REPORT INFORMATION
  Report Type: Spontaneous
  Country: US (occurrence: US)
  Receive Date: 20241207
  Receipt Date: 20241207
  Transmission Date: 20250114
  Serious: No
  Sender: SANOFI AVENTIS
  Company Number: US-SA-2024SA360744

PATIENT
  Age: 54 Year
  Sex: Female

DRUGS (17)
  1. DUPIXENT [Suspect]
     Active Substance: DUPILUMAB
     Indication: Hepatic fibrosis
     Dosage: INJECT 1 PEN SUBCUTANEOUSLY EVERY OTHER WEEK
  2. BROMOCRIPTINE MESYLATE [Concomitant]
     Active Substance: BROMOCRIPTINE MESYLATE
  3. DEPLIN [Concomitant]
     Active Substance: LEVOMEFOLATE CALCIUM
  4. PANTOPRAZOLE [Concomitant]
     Active Substance: PANTOPRAZOLE
  5. REPATHA [Concomitant]
     Active Substance: EVOLOCUMAB
  6. ZETIA [Concomitant]
     Active Substance: EZETIMIBE
  7. PLAQUENIL [Concomitant]
     Active Substance: HYDROXYCHLOROQUINE SULFATE
  8. ADDERALL [Concomitant]
     Active Substance: AMPHETAMINE ASPARTATE\AMPHETAMINE SULFATE\DEXTROAMPHETAMINE SACCHARATE\DEXTROAMPHETAMINE SULFATE
  9. TRINTELLIX [Concomitant]
     Active Substance: VORTIOXETINE HYDROBROMIDE
  10. AIMOVIG [Concomitant]
     Active Substance: ERENUMAB\ERENUMAB-AOOE
  11. ATORVASTATIN [Concomitant]
     Active Substance: ATORVASTATIN
  12. FARXIGA [Concomitant]
     Active Substance: DAPAGLIFLOZIN PROPANEDIOL
  13. HYDROCODONE [Concomitant]
     Active Substance: HYDROCODONE
  14. TRESIBA [Concomitant]
     Active Substance: INSULIN DEGLUDEC
  15. TRULICITY [Concomitant]
     Active Substance: DULAGLUTIDE
  16. VITAMIN D [Concomitant]
     Active Substance: VITAMIN D NOS
  17. ZYPREXA [Concomitant]
     Active Substance: OLANZAPINE

REACTIONS (5)
  - Hepatic enzyme increased [Not Recovered/Not Resolved]
  - Limb discomfort [Recovering/Resolving]
  - Decreased appetite [Not Recovered/Not Resolved]
  - Depression [Not Recovered/Not Resolved]
  - Product used for unknown indication [Unknown]
